FAERS Safety Report 9394354 (Version 1)
Quarter: 2013Q3

REPORT INFORMATION
  Report Type: Spontaneous
  Country: FR (occurrence: FR)
  Receive Date: 20130711
  Receipt Date: 20130711
  Transmission Date: 20140515
  Serious: Yes (Life-Threatening, Hospitalization)
  Sender: FDA-Public Use
  Company Number: FR-ASTRAZENECA-2013SE51143

PATIENT
  Age: 31222 Day
  Sex: Male
  Weight: 51 kg

DRUGS (10)
  1. INEXIUM [Suspect]
     Route: 048
     Dates: start: 20130522, end: 20130524
  2. IMUREL [Suspect]
     Route: 048
     Dates: start: 201303, end: 20130524
  3. AMLODIPINE [Concomitant]
  4. ASPEGIC [Concomitant]
  5. DAFALGAN [Concomitant]
     Dosage: AS REQUIRED
  6. CACIT D3 [Concomitant]
  7. CORTANCYL [Concomitant]
  8. CORTANCYL [Concomitant]
  9. PARIET [Concomitant]
  10. CLAIRYG [Concomitant]
     Indication: MYOSITIS
     Route: 042
     Dates: start: 20130523, end: 20130524

REACTIONS (2)
  - Sepsis [Recovered/Resolved]
  - Agranulocytosis [Recovered/Resolved]
